FAERS Safety Report 5169330-2 (Version None)
Quarter: 2006Q4

REPORT INFORMATION
  Report Type: 
  Country: None (occurrence: None)
  Receive Date: 20061201
  Receipt Date: 20061120
  Transmission Date: 20070319
  Serious: Yes (Death)
  Sender: FDA-Public Use
  Company Number: OMPQ-NO-0610S-1465

PATIENT
  Age: 43 Year
  Sex: Female
  Weight: 94 kg

DRUGS (3)
  1. OMNIPAQUE 140 [Suspect]
     Indication: NERVE ROOT COMPRESSION
     Dosage: 20 ML, SINGLE DOSE, I.T.
     Route: 038
     Dates: start: 20061009, end: 20061009
  2. OMNIPAQUE 140 [Suspect]
  3. NOVOCAINE-ADRENALINE (NOVOCAINE) [Concomitant]

REACTIONS (28)
  - ANAPHYLACTIC SHOCK [None]
  - BLOOD CALCIUM DECREASED [None]
  - BLOOD PH DECREASED [None]
  - BRADYPNOEA [None]
  - CARDIAC DISORDER [None]
  - CARDIOMYOPATHY [None]
  - CARDIOTOXICITY [None]
  - CENTRAL VENOUS PRESSURE INCREASED [None]
  - COMA [None]
  - CYANOSIS [None]
  - DISORIENTATION [None]
  - DYSPNOEA [None]
  - DYSURIA [None]
  - EJECTION FRACTION DECREASED [None]
  - GRAND MAL CONVULSION [None]
  - HAEMODYNAMIC INSTABILITY [None]
  - HYPOTENSION [None]
  - MULTI-ORGAN FAILURE [None]
  - NEPHRITIS INTERSTITIAL [None]
  - PAIN IN EXTREMITY [None]
  - PSYCHOMOTOR HYPERACTIVITY [None]
  - PULMONARY EMBOLISM [None]
  - PULMONARY HYPERTENSION [None]
  - RENAL DISORDER [None]
  - SINUS TACHYCARDIA [None]
  - SPINAL DISORDER [None]
  - TRICUSPID VALVE INCOMPETENCE [None]
  - VENTRICULAR DYSFUNCTION [None]
